FAERS Safety Report 6616169-4 (Version None)
Quarter: 2010Q1

REPORT INFORMATION
  Report Type: 
  Country: None (occurrence: None)
  Receive Date: 20100305
  Receipt Date: 20100223
  Transmission Date: 20100710
  Serious: Yes (Death, Life-Threatening, Hospitalization)
  Sender: FDA-Public Use
  Company Number: FR-PFIZER INC-2010009549

PATIENT
  Age: 61 Year
  Sex: Female
  Weight: 64 kg

DRUGS (4)
  1. SUNITINIB MALATE [Suspect]
     Indication: RENAL CELL CARCINOMA
     Dosage: 50 MG, 1X/DAY
     Dates: start: 20091228, end: 20100121
  2. INNOHEP [Suspect]
     Indication: VENA CAVA THROMBOSIS
     Dosage: 0.6 ML, 1X/DAY
     Route: 058
     Dates: start: 20091218, end: 20100121
  3. ODRIK [Concomitant]
     Indication: HYPERTENSION
     Dosage: 4 MG, 1X/DAY
     Route: 048
     Dates: start: 20091228, end: 20100219
  4. ACTOS [Concomitant]
     Indication: TYPE 2 DIABETES MELLITUS
     Dosage: 30 UNK, 1X/DAY
     Route: 048
     Dates: end: 20100121

REACTIONS (5)
  - DEATH [None]
  - DISSEMINATED INTRAVASCULAR COAGULATION [None]
  - HAEMORRHAGIC DISORDER [None]
  - RENAL FAILURE ACUTE [None]
  - SUBILEUS [None]
